FAERS Safety Report 13227668 (Version 2)
Quarter: 2017Q1

REPORT INFORMATION
  Report Type: Spontaneous
  Country: PT (occurrence: PT)
  Receive Date: 20170213
  Receipt Date: 20170223
  Transmission Date: 20170428
  Serious: Yes (Other)
  Sender: FDA-Public Use
  Company Number: PT-JNJFOC-20170209076

PATIENT

DRUGS (2)
  1. IBRUTINIB [Suspect]
     Active Substance: IBRUTINIB
     Indication: LYMPHOCYTIC LYMPHOMA
     Route: 048
  2. IBRUTINIB [Suspect]
     Active Substance: IBRUTINIB
     Indication: CHRONIC LYMPHOCYTIC LEUKAEMIA
     Route: 048

REACTIONS (15)
  - Oedema peripheral [Unknown]
  - Anaemia [Unknown]
  - Campylobacter sepsis [Unknown]
  - Headache [Unknown]
  - Pyrexia [Unknown]
  - Diarrhoea [Unknown]
  - Arthralgia [Unknown]
  - Haemorrhage [Unknown]
  - Stomatitis [Unknown]
  - Neutropenia [Unknown]
  - Thrombocytopenia [Unknown]
  - Dizziness [Unknown]
  - Skin infection [Unknown]
  - Cytomegalovirus colitis [Unknown]
  - Pneumonia [Unknown]
